FAERS Safety Report 10022517 (Version 1)
Quarter: 2014Q1

REPORT INFORMATION
  Report Type: Spontaneous
  Country: CL (occurrence: CL)
  Receive Date: 20140319
  Receipt Date: 20140319
  Transmission Date: 20141002
  Serious: Yes (Other)
  Sender: FDA-Public Use
  Company Number: CL-PFIZER INC-2014073466

PATIENT
  Age: 77 Year
  Sex: Male

DRUGS (2)
  1. XALATAN [Suspect]
     Indication: GLAUCOMA
     Dosage: 1 DROP, 1X/DAY
     Dates: start: 1994
  2. TIOF [Concomitant]
     Dosage: UNK

REACTIONS (2)
  - Eye disorder [Unknown]
  - Eye disorder [Unknown]
